FAERS Safety Report 18004558 (Version 4)
Quarter: 2020Q4

REPORT INFORMATION
  Report Type: Spontaneous
  Country: US (occurrence: US)
  Receive Date: 20200710
  Receipt Date: 20201116
  Transmission Date: 20210113
  Serious: Yes (Other)
  Sender: FDA-Public Use
  Company Number: US-GLAXOSMITHKLINE-US2020AMR125311

PATIENT
  Sex: Female

DRUGS (5)
  1. ZEJULA [Suspect]
     Active Substance: NIRAPARIB
     Indication: OVARIAN CANCER
     Dosage: 100 MG, QOD
     Dates: start: 20200508
  2. ZEJULA [Suspect]
     Active Substance: NIRAPARIB
     Dosage: 100 MG, TID
  3. ZEJULA [Suspect]
     Active Substance: NIRAPARIB
     Dosage: 100 MG, TID
     Dates: start: 202006
  4. ZEJULA [Suspect]
     Active Substance: NIRAPARIB
     Dosage: UNK (100MG TITRATING UPTO 300MG DAILY)
     Dates: start: 202007
  5. ZEJULA [Suspect]
     Active Substance: NIRAPARIB
     Dosage: 100 MG, QOD (100MG FOR 2 DAYS ON, THEN 1 DAY OFF)
     Dates: end: 20200803

REACTIONS (5)
  - Anaemia [Unknown]
  - Inappropriate schedule of product administration [Unknown]
  - White blood cell count abnormal [Unknown]
  - Platelet count decreased [Unknown]
  - Thrombocytopenia [Unknown]
